FAERS Safety Report 18427902 (Version 1)
Quarter: 2020Q4

REPORT INFORMATION
  Report Type: Spontaneous
  Country: GR (occurrence: GR)
  Receive Date: 20201026
  Receipt Date: 20201026
  Transmission Date: 20210114
  Serious: Yes (Other)
  Sender: FDA-Public Use
  Company Number: GR-MYLANLABS-2020M1089057

PATIENT
  Age: 39 Year
  Sex: Male

DRUGS (4)
  1. EZETIMIBE. [Concomitant]
     Active Substance: EZETIMIBE
     Indication: ACUTE CORONARY SYNDROME
     Dosage: 10 MILLIGRAM
  2. ROSUVASTATINA MYLAN [Suspect]
     Active Substance: ROSUVASTATIN CALCIUM
     Indication: ACUTE CORONARY SYNDROME
     Dosage: 5 MILLIGRAM
  3. ATORVASTATIN [Suspect]
     Active Substance: ATORVASTATIN
     Indication: ACUTE CORONARY SYNDROME
     Dosage: 40 MILLIGRAM
  4. ROSUVASTATINA MYLAN [Suspect]
     Active Substance: ROSUVASTATIN CALCIUM
     Dosage: 20 MILLIGRAM

REACTIONS (4)
  - Drug ineffective [Unknown]
  - Fatigue [Recovered/Resolved]
  - Myopathy [Recovered/Resolved]
  - Arthralgia [Recovered/Resolved]
